FAERS Safety Report 11174084 (Version 1)
Quarter: 2015Q2

REPORT INFORMATION
  Report Type: Spontaneous
  Country: RO (occurrence: RO)
  Receive Date: 20150609
  Receipt Date: 20150609
  Transmission Date: 20150821
  Serious: Yes (Hospitalization)
  Sender: FDA-Public Use
  Company Number: RO-JNJFOC-20150602645

PATIENT
  Sex: Male

DRUGS (1)
  1. REMICADE [Suspect]
     Active Substance: INFLIXIMAB
     Indication: PSORIATIC ARTHROPATHY
     Dosage: START DATE: 2006-2007
     Route: 042
     Dates: end: 20150331

REACTIONS (1)
  - Tendon operation [Recovered/Resolved]

NARRATIVE: CASE EVENT DATE: 2011
